FAERS Safety Report 5058526-6 (Version None)
Quarter: 2006Q2

REPORT INFORMATION
  Report Type: 
  Country: None (occurrence: None)
  Receive Date: 20060627
  Receipt Date: 20050520
  Transmission Date: 20061013
  Serious: Yes (Hospitalization)
  Sender: FDA-Public Use
  Company Number: 405615

PATIENT
  Age: 63 Year
  Sex: Male
  Weight: 77.1 kg

DRUGS (5)
  1. XELODA [Suspect]
     Indication: PANCREATIC CARCINOMA
     Dosage: 120 MG 2 PER DAY ORAL
     Route: 048
     Dates: start: 20030415
  2. CONCOMITANT DRUG (GENERIC UNKNOWN) [Concomitant]
  3. GEMZAR [Concomitant]
  4. PRAVACHOL [Concomitant]
  5. VITAMIN (VITAMIN NOS) [Concomitant]

REACTIONS (3)
  - DENTAL CARIES [None]
  - HERPES VIRUS INFECTION [None]
  - TEETH BRITTLE [None]
